FAERS Safety Report 12046932 (Version 1)
Quarter: 2016Q1

REPORT INFORMATION
  Report Type: Report from Study
  Country: CN (occurrence: CN)
  Receive Date: 20160208
  Receipt Date: 20160208
  Transmission Date: 20160526
  Serious: Yes (Hospitalization, Other)
  Sender: FDA-Public Use
  Company Number: CN-GLAXOSMITHKLINE-B0851393A

PATIENT
  Age: 42 Year
  Sex: Female
  Weight: 82 kg

DRUGS (6)
  1. QUETIAPINE FUMARATE. [Concomitant]
     Active Substance: QUETIAPINE FUMARATE
     Indication: BIPOLAR DISORDER
     Dosage: 200 MG, 1D
     Route: 048
     Dates: start: 20121128, end: 20121203
  2. LAMOTRIGINE. [Concomitant]
     Active Substance: LAMOTRIGINE
     Indication: BIPOLAR DISORDER
     Dosage: 200 MG, 1D
     Route: 048
     Dates: start: 20121204, end: 20121204
  3. LAMOTRIGINE. [Concomitant]
     Active Substance: LAMOTRIGINE
     Dosage: 150 MG, 1D
     Route: 048
     Dates: start: 20121217
  4. QUETIAPINE FUMARATE. [Concomitant]
     Active Substance: QUETIAPINE FUMARATE
     Dosage: 300 MG, 1D
     Route: 048
     Dates: start: 20121204
  5. LAMOTRIGINE. [Suspect]
     Active Substance: LAMOTRIGINE
     Indication: BIPOLAR DISORDER
     Route: 048
     Dates: start: 20120925, end: 20121203
  6. LAMOTRIGINE. [Concomitant]
     Active Substance: LAMOTRIGINE
     Dosage: 100 MG, 1D
     Route: 048
     Dates: start: 20121205, end: 20121216

REACTIONS (1)
  - Bipolar disorder [Recovered/Resolved]

NARRATIVE: CASE EVENT DATE: 20121128
